FAERS Safety Report 5112992-6 (Version None)
Quarter: 2006Q3

REPORT INFORMATION
  Report Type: 
  Country: None (occurrence: None)
  Receive Date: 20060920
  Receipt Date: 20060906
  Transmission Date: 20061208
  Serious: Yes (Hospitalization)
  Sender: FDA-Public Use
  Company Number: 2006PV019290

PATIENT
  Age: 68 Year
  Sex: Female

DRUGS (9)
  1. BYETTA [Suspect]
     Indication: DIABETES MELLITUS NON-INSULIN-DEPENDENT
     Dosage: SEE IMAGE
     Route: 058
     Dates: start: 20051216, end: 20060101
  2. BYETTA [Suspect]
     Indication: DIABETES MELLITUS NON-INSULIN-DEPENDENT
     Dosage: SEE IMAGE
     Route: 058
     Dates: start: 20060101
  3. ACTOS [Concomitant]
  4. PRANDIN [Concomitant]
  5. CLINIDINE [Concomitant]
  6. VERAPAMIL [Concomitant]
  7. CAPTOPRIL [Concomitant]
  8. VITAMIN E [Concomitant]
  9. MULTIVITAMIN [Concomitant]

REACTIONS (3)
  - BRAIN NEOPLASM [None]
  - MEMORY IMPAIRMENT [None]
  - METASTATIC RENAL CELL CARCINOMA [None]
